FAERS Safety Report 4999511-X (Version None)
Quarter: 2006Q2

REPORT INFORMATION
  Report Type: 
  Country: None (occurrence: None)
  Receive Date: 20060510
  Receipt Date: 20060510
  Transmission Date: 20061013
  Serious: Yes (Life-Threatening)
  Sender: FDA-Public Use
  Company Number: None

PATIENT
  Age: 63 Year
  Sex: Male
  Weight: 51.8 kg

DRUGS (12)
  1. PHENYTOIN [Suspect]
     Indication: CONVULSION
     Dosage: 1 GM IV
     Route: 042
     Dates: start: 20060324
  2. PHENYTOIN [Suspect]
     Indication: PROPHYLAXIS
     Dosage: 1 GM IV
     Route: 042
     Dates: start: 20060324
  3. DIGOXIN [Concomitant]
  4. LEVOTHYROXINE SODIUM [Concomitant]
  5. TEMAZEPAM [Concomitant]
  6. LANSOPRAZOLE [Concomitant]
  7. INHALERS [Concomitant]
  8. TRAZODONE HCL [Concomitant]
  9. METOCLOPRAMIDE [Concomitant]
  10. MANNITOL [Concomitant]
  11. CEFAZOLIN [Concomitant]
  12. DEXAMETHASONE [Concomitant]

REACTIONS (5)
  - BLOOD PRESSURE INCREASED [None]
  - CARDIAC ARREST [None]
  - HEART RATE INCREASED [None]
  - HYPOTENSION [None]
  - THERAPY NON-RESPONDER [None]
